FAERS Safety Report 6509647-X (Version None)
Quarter: 2009Q4

REPORT INFORMATION
  Report Type: 
  Country: None (occurrence: None)
  Receive Date: 20091222
  Receipt Date: 20091216
  Transmission Date: 20100525
  Serious: Yes (Hospitalization)
  Sender: FDA-Public Use
  Company Number: AU-ASTRAZENECA-2009SE32272

PATIENT
  Age: 22250 Day
  Sex: Female

DRUGS (1)
  1. CRESTOR [Suspect]
     Route: 048
     Dates: start: 20081203, end: 20090111

REACTIONS (3)
  - ORGANISING PNEUMONIA [None]
  - PULMONARY FIBROSIS [None]
  - VASCULITIS [None]
